FAERS Safety Report 25981241 (Version 3)
Quarter: 2025Q4

REPORT INFORMATION
  Report Type: Report from Study
  Country: EU (occurrence: EU)
  Receive Date: 20251030
  Receipt Date: 20251214
  Transmission Date: 20260117
  Serious: Yes (Other)
  Sender: TAKEDA
  Company Number: EU-TAKEDA-2025TUS095564

PATIENT

DRUGS (6)
  1. BRIGATINIB [Suspect]
     Active Substance: BRIGATINIB
     Indication: Anaplastic large cell lymphoma T- and null-cell types recurrent
     Dosage: 90 MILLIGRAM, QD
     Dates: start: 20251018
  2. BRIGATINIB [Suspect]
     Active Substance: BRIGATINIB
     Dosage: 240 MILLIGRAM, QD
     Dates: start: 20251025
  3. BRIGATINIB [Suspect]
     Active Substance: BRIGATINIB
     Dosage: 90 MILLIGRAM
  4. BRIGATINIB [Suspect]
     Active Substance: BRIGATINIB
     Dosage: 240 MILLIGRAM
  5. DEXAMETHASONE [Concomitant]
     Active Substance: DEXAMETHASONE
     Dosage: UNK
     Dates: start: 20251013, end: 20251017
  6. DEXAMETHASONE [Concomitant]
     Active Substance: DEXAMETHASONE
     Dosage: UNK
     Dates: start: 20251110, end: 20251114

REACTIONS (1)
  - Bradycardia [Recovering/Resolving]
